FAERS Safety Report 20722400 (Version 1)
Quarter: 2022Q2

REPORT INFORMATION
  Report Type: Spontaneous
  Country: US (occurrence: None)
  Receive Date: 20220418
  Receipt Date: 20220418
  Transmission Date: 20220721
  Serious: Yes (Life-Threatening, Hospitalization, Disabling, Other)
  Sender: FDA-Public Use
  Company Number: 2022A153543

PATIENT
  Age: 43 Year
  Sex: Female
  Weight: 63.5 kg

DRUGS (40)
  1. SEROQUEL [Suspect]
     Active Substance: QUETIAPINE FUMARATE
     Route: 048
  2. OMEPRAZOLE [Suspect]
     Active Substance: OMEPRAZOLE
     Dosage: 40.0MG UNKNOWN
     Route: 048
     Dates: start: 20201121
  3. PRILOSEC [Suspect]
     Active Substance: OMEPRAZOLE MAGNESIUM
     Route: 048
  4. REXULTI [Suspect]
     Active Substance: BREXPIPRAZOLE
     Indication: Depression
     Route: 048
     Dates: start: 2018
  5. REXULTI [Suspect]
     Active Substance: BREXPIPRAZOLE
     Indication: Depression
     Dosage: 2.0MG UNKNOWN
     Route: 048
     Dates: start: 2020
  6. REXULTI [Suspect]
     Active Substance: BREXPIPRAZOLE
     Indication: Depression
     Dosage: 3.0MG UNKNOWN
     Route: 048
     Dates: start: 2020
  7. REXULTI [Suspect]
     Active Substance: BREXPIPRAZOLE
     Indication: Depression
     Dosage: 4.0MG UNKNOWN
     Route: 048
     Dates: start: 2020
  8. REXULTI [Suspect]
     Active Substance: BREXPIPRAZOLE
     Indication: Depression
     Dosage: 1 MG,1 AM UNKNOWN
     Route: 048
     Dates: start: 20220212
  9. ABILIFY [Suspect]
     Active Substance: ARIPIPRAZOLE
     Indication: Affective disorder
     Route: 048
  10. METFORMIN [Suspect]
     Active Substance: METFORMIN HYDROCHLORIDE
     Route: 065
  11. PROZAC [Concomitant]
     Active Substance: FLUOXETINE HYDROCHLORIDE
  12. LORAZEPAM [Concomitant]
     Active Substance: LORAZEPAM
  13. BENZTROPINE [Concomitant]
     Active Substance: BENZTROPINE
  14. AMANTADINE [Concomitant]
     Active Substance: AMANTADINE
  15. VALIUM [Concomitant]
     Active Substance: DIAZEPAM
  16. HYDROXYZINE [Concomitant]
     Active Substance: HYDROXYZINE HYDROCHLORIDE
  17. CLONIDINE [Concomitant]
     Active Substance: CLONIDINE
  18. LITHIUM CARBONATE [Concomitant]
     Active Substance: LITHIUM CARBONATE
  19. HYDROXYZINE PAMOATE [Concomitant]
     Active Substance: HYDROXYZINE PAMOATE
  20. VYVANSE [Concomitant]
     Active Substance: LISDEXAMFETAMINE DIMESYLATE
  21. ADDERALL [Concomitant]
     Active Substance: AMPHETAMINE ASPARTATE\AMPHETAMINE SULFATE\DEXTROAMPHETAMINE SACCHARATE\DEXTROAMPHETAMINE SULFATE
  22. MODAFINIL [Concomitant]
     Active Substance: MODAFINIL
  23. AMBIEN CR [Concomitant]
     Active Substance: ZOLPIDEM TARTRATE
  24. PRAZOSIN [Concomitant]
     Active Substance: PRAZOSIN
  25. HYDROXYZINE HYDROCHLORIDE [Concomitant]
     Active Substance: HYDROXYZINE HYDROCHLORIDE
  26. VIIBRYD [Concomitant]
     Active Substance: VILAZODONE HYDROCHLORIDE
  27. OMEPRAZOLE [Concomitant]
     Active Substance: OMEPRAZOLE
  28. KEPPRA [Concomitant]
     Active Substance: LEVETIRACETAM
  29. SPRAVATO [Concomitant]
     Active Substance: ESKETAMINE
  30. CALCIUM [Concomitant]
     Active Substance: CALCIUM
  31. VITAMIN D3 [Concomitant]
     Active Substance: CHOLECALCIFEROL
  32. INGREZZA [Concomitant]
     Active Substance: VALBENAZINE
  33. DEPAKOTE [Concomitant]
     Active Substance: DIVALPROEX SODIUM
  34. LEVOTHYROXINE [Concomitant]
     Active Substance: LEVOTHYROXINE
  35. PRILOSEC [Concomitant]
     Active Substance: OMEPRAZOLE MAGNESIUM
  36. CYTOMEL [Concomitant]
     Active Substance: LIOTHYRONINE SODIUM
  37. LIOTHYRONINE [Concomitant]
     Active Substance: LIOTHYRONINE
  38. PROPRANOLOL [Concomitant]
     Active Substance: PROPRANOLOL HYDROCHLORIDE
     Indication: Anxiety
  39. PROPRANOLOL [Concomitant]
     Active Substance: PROPRANOLOL HYDROCHLORIDE
     Indication: Tremor
  40. VOLTAREN [Concomitant]
     Active Substance: DICLOFENAC SODIUM
     Indication: Arthritis

REACTIONS (18)
  - Weight decreased [Recovered/Resolved]
  - Feeding disorder [Unknown]
  - Malnutrition [Unknown]
  - Speech disorder [Unknown]
  - Impaired work ability [Unknown]
  - Tardive dyskinesia [Recovered/Resolved]
  - Hunger [Unknown]
  - Hypomania [Unknown]
  - Mood altered [Unknown]
  - Stomatitis [Unknown]
  - Obsessive-compulsive disorder [Unknown]
  - Dysphagia [Recovered/Resolved]
  - Akathisia [Unknown]
  - Drug ineffective [Unknown]
  - Product use in unapproved indication [Unknown]
  - Incorrect dose administered [Unknown]
  - Drug ineffective for unapproved indication [Unknown]
  - Weight increased [Unknown]

NARRATIVE: CASE EVENT DATE: 20200101
